FAERS Safety Report 6967690-0 (Version None)
Quarter: 2010Q3

REPORT INFORMATION
  Report Type: 
  Country: None (occurrence: None)
  Receive Date: 20100907
  Receipt Date: 20100827
  Transmission Date: 20110219
  Serious: Yes (Hospitalization)
  Sender: FDA-Public Use
  Company Number: US-PFIZER INC-2010097238

PATIENT
  Sex: Female

DRUGS (2)
  1. XANAX [Suspect]
     Indication: ANXIETY
     Dosage: UNK
  2. CELEXA [Suspect]
     Dosage: 20 MG, UNK

REACTIONS (2)
  - DRUG INEFFECTIVE [None]
  - PALPITATIONS [None]
